FAERS Safety Report 6874923-8 (Version None)
Quarter: 2010Q2

REPORT INFORMATION
  Report Type: 
  Country: None (occurrence: None)
  Receive Date: 20100610
  Receipt Date: 20100511
  Transmission Date: 20101027
  Serious: No
  Sender: FDA-Public Use
  Company Number: 2010SP026647

PATIENT
  Sex: Female

DRUGS (1)
  1. SAPHRIS [Suspect]
     Indication: BIPOLAR DISORDER
     Dosage: ;PO

REACTIONS (4)
  - GLOSSODYNIA [None]
  - INCORRECT ROUTE OF DRUG ADMINISTRATION [None]
  - OROPHARYNGEAL BLISTERING [None]
  - STOMATITIS [None]
